FAERS Safety Report 7959537-0 (Version None)
Quarter: 2011Q4

REPORT INFORMATION
  Report Type: 
  Country: None (occurrence: None)
  Receive Date: 20111206
  Receipt Date: 20111130
  Transmission Date: 20120403
  Serious: Yes (Death, Other)
  Sender: FDA-Public Use
  Company Number: GB-ROCHE-1013939

PATIENT
  Sex: Female

DRUGS (6)
  1. LUCENTIS [Suspect]
     Indication: PRODUCT USED FOR UNKNOWN INDICATION
     Route: 050
  2. ARIMIDEX [Concomitant]
     Dates: start: 20070801
  3. WARFARIN SODIUM [Concomitant]
     Dates: start: 20090401
  4. BISOPROLOL FUMARATE [Concomitant]
     Dates: start: 20050801
  5. SPIRONOLACTONE [Concomitant]
     Dates: start: 20090601
  6. CITALOPRAM [Concomitant]

REACTIONS (2)
  - ATRIAL FIBRILLATION [None]
  - CEREBROVASCULAR ACCIDENT [None]
